FAERS Safety Report 6647848-0 (Version None)
Quarter: 2010Q1

REPORT INFORMATION
  Report Type: 
  Country: None (occurrence: None)
  Receive Date: 20100324
  Receipt Date: 20100312
  Transmission Date: 20100710
  Serious: No
  Sender: FDA-Public Use
  Company Number: US-JNJFOC-20100110094

PATIENT
  Age: 83 Year
  Sex: Female
  Weight: 58.06 kg

DRUGS (4)
  1. TYLENOL (CAPLET) [Suspect]
     Route: 048
  2. TYLENOL (CAPLET) [Suspect]
     Indication: NECK PAIN
     Route: 048
  3. COZAAR [Concomitant]
  4. AMLODIPINE [Concomitant]

REACTIONS (5)
  - CHILLS [None]
  - FATIGUE [None]
  - MALAISE [None]
  - NAUSEA [None]
  - PRODUCT QUALITY ISSUE [None]
